FAERS Safety Report 9289976 (Version 2)
Quarter: 2013Q2

REPORT INFORMATION
  Report Type: Spontaneous
  Country: US (occurrence: US)
  Receive Date: 20130515
  Receipt Date: 20130610
  Transmission Date: 20140414
  Serious: No
  Sender: FDA-Public Use
  Company Number: US-009507513-1305USA007912

PATIENT
  Age: 47 Year
  Sex: Female

DRUGS (2)
  1. SAPHRIS [Suspect]
     Indication: BIPOLAR DISORDER
     Dosage: 10 MG, BID
     Route: 060
     Dates: start: 201302, end: 201303
  2. LITHIUM [Concomitant]

REACTIONS (1)
  - Weight increased [Recovering/Resolving]
